FAERS Safety Report 8031187-X (Version None)
Quarter: 2012Q1

REPORT INFORMATION
  Report Type: 
  Country: None (occurrence: None)
  Receive Date: 20120109
  Receipt Date: 20111020
  Transmission Date: 20120608
  Serious: Yes (Other)
  Sender: FDA-Public Use
  Company Number: ES-CELGENEUS-144-21660-11102401

PATIENT
  Age: 50 Year
  Sex: Female

DRUGS (2)
  1. ABRAXANE [Suspect]
     Route: 041
  2. ABRAXANE [Suspect]
     Route: 041

REACTIONS (2)
  - SKIN TOXICITY [None]
  - MUCOSAL INFLAMMATION [None]
